FAERS Safety Report 9089385 (Version 1)
Quarter: 2013Q1

REPORT INFORMATION
  Report Type: Report from Study
  Country: US (occurrence: US)
  Receive Date: 20130218
  Receipt Date: 20130218
  Transmission Date: 20140127
  Serious: No
  Sender: FDA-Public Use
  Company Number: US-ABBOTT-12P-163-0934853-00

PATIENT
  Sex: Female
  Weight: 95.34 kg

DRUGS (1)
  1. SIMCOR 1000MG/40MG [Suspect]
     Indication: BLOOD CHOLESTEROL ABNORMAL
     Dosage: 1000/40 MG AT NIGHT
     Dates: start: 20120407

REACTIONS (2)
  - Flushing [Recovered/Resolved]
  - Feeling hot [Recovered/Resolved]
